FAERS Safety Report 9371063 (Version 1)
Quarter: 2013Q2

REPORT INFORMATION
  Report Type: Spontaneous
  Country: US (occurrence: US)
  Receive Date: 20130627
  Receipt Date: 20130627
  Transmission Date: 20140414
  Serious: No
  Sender: FDA-Public Use
  Company Number: US-009507513-1306USA007549

PATIENT
  Age: 50 Year
  Sex: Female

DRUGS (3)
  1. PEGINTRON [Suspect]
     Indication: HEPATITIS C
     Dosage: REDIPEN, 150, ONCE WEEKLY INJECTION
     Route: 059
     Dates: start: 20130613
  2. REBETOL [Suspect]
  3. TELAPREVIR [Suspect]

REACTIONS (3)
  - Chills [Recovering/Resolving]
  - Arthralgia [Recovering/Resolving]
  - Pain [Recovering/Resolving]
